FAERS Safety Report 20539526 (Version 2)
Quarter: 2022Q2

REPORT INFORMATION
  Report Type: Spontaneous
  Country: US (occurrence: US)
  Receive Date: 20220302
  Receipt Date: 20220404
  Transmission Date: 20220721
  Serious: Yes (Other)
  Sender: FDA-Public Use
  Company Number: US-BAYER-2022A020730

PATIENT
  Age: 64 Year
  Sex: Male

DRUGS (1)
  1. NUBEQA [Suspect]
     Active Substance: DAROLUTAMIDE

REACTIONS (2)
  - Gynaecomastia [None]
  - Breast tenderness [None]

NARRATIVE: CASE EVENT DATE: 20211201
